FAERS Safety Report 18629141 (Version 2)
Quarter: 2021Q2

REPORT INFORMATION
  Report Type: Spontaneous
  Country: US (occurrence: US)
  Receive Date: 20201217
  Receipt Date: 20210409
  Transmission Date: 20210717
  Serious: No
  Sender: FDA-Public Use
  Company Number: US-ASTRAZENECA-2020SF58482

PATIENT
  Sex: Female
  Weight: 74.4 kg

DRUGS (14)
  1. SYMBICORT [Suspect]
     Active Substance: BUDESONIDE\FORMOTEROL FUMARATE DIHYDRATE
     Indication: ASTHMA
     Dosage: 160/4.5, ONCE IN THE MORNING AND ONCE AT NIGHT
     Route: 055
  2. FASENRA [Suspect]
     Active Substance: BENRALIZUMAB
     Indication: ASTHMA
     Route: 058
  3. FASENRA [Suspect]
     Active Substance: BENRALIZUMAB
     Indication: HYPERSENSITIVITY
     Route: 058
  4. LISINOPRIL. [Concomitant]
     Active Substance: LISINOPRIL
  5. VITAMIN B12 [Concomitant]
     Active Substance: CYANOCOBALAMIN
  6. GLIPIZIDE. [Concomitant]
     Active Substance: GLIPIZIDE
     Dosage: 2.5MG AS REQUIRED
  7. AMLOTEDINE [Concomitant]
  8. METOPROLOL. [Suspect]
     Active Substance: METOPROLOL
     Route: 065
  9. ASPIRIN. [Concomitant]
     Active Substance: ASPIRIN
  10. VITAMIN D [Concomitant]
     Active Substance: VITAMIN D NOS
     Dosage: 25 DAILY
  11. INTEGRA [Concomitant]
     Active Substance: DIETARY SUPPLEMENT
  12. AREDS 2 [Concomitant]
     Active Substance: MINERALS\VITAMINS
     Dosage: TWO TIMES A DAY, ONE IN THE MORNING AND ONE IN THE EVENING
  13. CLOPIDOGREL [Concomitant]
     Active Substance: CLOPIDOGREL BISULFATE
  14. SIMVASTATIN. [Concomitant]
     Active Substance: SIMVASTATIN

REACTIONS (5)
  - Sinusitis [Unknown]
  - Blood potassium increased [Unknown]
  - Headache [Unknown]
  - Oropharyngeal pain [Unknown]
  - Blood glucose increased [Unknown]
